FAERS Safety Report 6795677-X (Version None)
Quarter: 2010Q2

REPORT INFORMATION
  Report Type: 
  Country: None (occurrence: None)
  Receive Date: 20100625
  Receipt Date: 20100614
  Transmission Date: 20101027
  Serious: Yes (Hospitalization, Other)
  Sender: FDA-Public Use
  Company Number: ES-ELI_LILLY_AND_COMPANY-ES201006004861

PATIENT
  Age: 58 Year
  Sex: Female

DRUGS (6)
  1. GEMZAR [Suspect]
     Indication: BREAST CANCER
     Dosage: 2000 MG/M2, UNK (EVERY TWO WEEKS)
     Route: 065
  2. PACLITAXEL [Concomitant]
     Dosage: 150 MG/M2, OTHER (EVERY TWO WEEKS)
     Route: 065
  3. ADRIAMYCIN PFS [Concomitant]
     Indication: BREAST CANCER
     Dosage: 40 MG/M2, OTHER (EVERY TWO WEEKS)
     Route: 065
  4. CORTICOSTEROIDS [Concomitant]
     Indication: PREMEDICATION
  5. COLONY STIMULATING FACTORS [Concomitant]
  6. LEVOFLOXACIN [Concomitant]
     Indication: RESPIRATORY FAILURE

REACTIONS (6)
  - MUCOSAL INFLAMMATION [None]
  - NEUTROPENIA [None]
  - NORMOCHROMIC NORMOCYTIC ANAEMIA [None]
  - PULMONARY TOXICITY [None]
  - RESPIRATORY TRACT INFECTION [None]
  - VOMITING [None]
